FAERS Safety Report 16570281 (Version 2)
Quarter: 2019Q3

REPORT INFORMATION
  Report Type: Report from Study
  Country: CA (occurrence: CA)
  Receive Date: 20190715
  Receipt Date: 20190729
  Transmission Date: 20191004
  Serious: Yes (Other)
  Sender: FDA-Public Use
  Company Number: CA-GLAXOSMITHKLINE-CA2019AMR124594

PATIENT
  Sex: Male

DRUGS (1)
  1. MEPOLIZUMAB [Suspect]
     Active Substance: MEPOLIZUMAB
     Indication: ASTHMA
     Dosage: 100 MG, 1 MONTH
     Route: 042
     Dates: start: 20170407

REACTIONS (5)
  - Pain [Unknown]
  - Asthenia [Unknown]
  - Stress [Unknown]
  - Pemphigoid [Recovering/Resolving]
  - Skin lesion [Unknown]
